FAERS Safety Report 6194470-9 (Version None)
Quarter: 2009Q2

REPORT INFORMATION
  Report Type: 
  Country: None (occurrence: None)
  Receive Date: 20090519
  Receipt Date: 20090508
  Transmission Date: 20091009
  Serious: Yes (Other)
  Sender: FDA-Public Use
  Company Number: PHHY2009BR17741

PATIENT
  Sex: Male

DRUGS (3)
  1. TEGRETOL [Suspect]
     Indication: EPILEPSY
     Dosage: 200 MG, UNK
     Route: 048
  2. TOFRANIL [Concomitant]
     Dosage: 25 MG, UNK
     Dates: start: 20071201
  3. TOFRANIL [Concomitant]
     Dosage: 75 MG, UNK

REACTIONS (1)
  - FEAR [None]
